FAERS Safety Report 5921356-4 (Version None)
Quarter: 2008Q4

REPORT INFORMATION
  Report Type: 
  Country: None (occurrence: None)
  Receive Date: 20081014
  Receipt Date: 20081006
  Transmission Date: 20090506
  Serious: Yes (Death)
  Sender: FDA-Public Use
  Company Number: ENT 2008-0163

PATIENT
  Age: 77 Year
  Sex: Male

DRUGS (5)
  1. COMTAN [Suspect]
     Indication: PARKINSON'S DISEASE
     Dosage: 200 MG
  2. ANTIBIOTICS [Concomitant]
  3. PROLOPA [Concomitant]
  4. SIFROL [Concomitant]
  5. AMANTADINE HCL [Concomitant]

REACTIONS (1)
  - MULTI-ORGAN FAILURE [None]
